FAERS Safety Report 4622055-1 (Version None)
Quarter: 2005Q1

REPORT INFORMATION
  Report Type: 
  Country: None (occurrence: None)
  Receive Date: 20050328
  Receipt Date: 20050311
  Transmission Date: 20050727
  Serious: Yes (Hospitalization)
  Sender: FDA-Public Use
  Company Number: T04-USA-01443-01

PATIENT
  Age: 85 Year
  Sex: Male
  Weight: 69.6725 kg

DRUGS (14)
  1. MEMANTINE HCL [Suspect]
     Indication: DEMENTIA ALZHEIMER'S TYPE
     Dosage: 20 MG QD PO
     Route: 048
     Dates: start: 20030730, end: 20031207
  2. MEMANTINE HCL [Suspect]
     Indication: DEMENTIA ALZHEIMER'S TYPE
     Dosage: 20 MG QD PO
     Route: 048
     Dates: start: 20031217
  3. MEMANTINE HCL [Suspect]
     Indication: DEMENTIA ALZHEIMER'S TYPE
     Dosage: 20 MG QD PO
     Route: 048
     Dates: start: 20030312, end: 20030728
  4. MEMANTINE HCL [Suspect]
     Indication: DEMENTIA ALZHEIMER'S TYPE
     Dosage: 2 TABLET BID PO
     Route: 048
     Dates: start: 20030114, end: 20030311
  5. MEMANTINE (MEM-MD-10/ UNBLINDED) (MEMANTINE) [Suspect]
     Indication: DEMENTIA ALZHEIMER'S TYPE
     Dosage: 4 TABLET QD PO
     Route: 048
     Dates: start: 20020731, end: 20030113
  6. VITAMIN B6 [Concomitant]
  7. VITAMIN B-12 [Concomitant]
  8. VITAMIN C [Concomitant]
  9. VITAMIN E (VEGETABLE OIL) [Concomitant]
  10. ASPIRIN [Concomitant]
  11. OCUVITE [Concomitant]
  12. LISINOPRIL [Concomitant]
  13. PROTONIX [Concomitant]
  14. PROZAC [Concomitant]

REACTIONS (27)
  - BLOOD ALBUMIN INCREASED [None]
  - BLOOD CREATINE PHOSPHOKINASE INCREASED [None]
  - BLOOD GLUCOSE INCREASED [None]
  - BLOOD PHOSPHORUS DECREASED [None]
  - BLOOD PHOSPHORUS INCREASED [None]
  - BLOOD URINE PRESENT [None]
  - BUNDLE BRANCH BLOCK LEFT [None]
  - BUNDLE BRANCH BLOCK RIGHT [None]
  - DEHYDRATION [None]
  - EFFUSION [None]
  - GASTROENTERITIS [None]
  - HAEMATOCRIT DECREASED [None]
  - HAEMODIALYSIS [None]
  - HAEMOGLOBIN DECREASED [None]
  - HEPATIC CYST [None]
  - HYPERCALCAEMIA [None]
  - HYPERTENSION [None]
  - PANCREATITIS ACUTE [None]
  - PLATELET COUNT DECREASED [None]
  - PNEUMONIA [None]
  - PROTEIN TOTAL INCREASED [None]
  - PROTEIN URINE PRESENT [None]
  - RENAL CYST [None]
  - RENAL FAILURE ACUTE [None]
  - TROPONIN INCREASED [None]
  - URINARY SEDIMENT PRESENT [None]
  - URINE KETONE BODY PRESENT [None]
